FAERS Safety Report 7215151-6 (Version None)
Quarter: 2011Q1

REPORT INFORMATION
  Report Type: 
  Country: None (occurrence: None)
  Receive Date: 20110107
  Receipt Date: 20101201
  Transmission Date: 20110831
  Serious: No
  Sender: FDA-Public Use
  Company Number: A0881096A

PATIENT
  Age: 52 Year
  Sex: Male

DRUGS (5)
  1. ATACAND [Concomitant]
  2. ALLEGRA [Concomitant]
  3. LOVAZA [Suspect]
     Dosage: 2CAP TWICE PER DAY
     Route: 048
     Dates: start: 20090901
  4. ACIPHEX [Concomitant]
  5. ASPIRIN [Concomitant]

REACTIONS (4)
  - PRODUCT ODOUR ABNORMAL [None]
  - PRODUCT QUALITY ISSUE [None]
  - NAUSEA [None]
  - ERUCTATION [None]
